FAERS Safety Report 5793449-6 (Version None)
Quarter: 2008Q2

REPORT INFORMATION
  Report Type: 
  Country: None (occurrence: None)
  Receive Date: 20080627
  Receipt Date: 20080624
  Transmission Date: 20081010
  Serious: Yes (Disabling)
  Sender: FDA-Public Use
  Company Number: US-MERCK-0804USA01814

PATIENT
  Age: 50 Year
  Sex: Female
  Weight: 56 kg

DRUGS (4)
  1. VYTORIN [Suspect]
     Indication: BLOOD CHOLESTEROL INCREASED
     Route: 048
     Dates: start: 20060901, end: 20080404
  2. ELMIRON [Concomitant]
     Route: 065
  3. CITRACAL [Concomitant]
     Route: 065
  4. [THERAPY UNSPECIFIED] [Concomitant]
     Route: 065

REACTIONS (16)
  - ADVERSE EVENT [None]
  - ANTINUCLEAR ANTIBODY POSITIVE [None]
  - COMPLEMENT FACTOR C3 INCREASED [None]
  - CONNECTIVE TISSUE DISORDER [None]
  - DEPRESSION [None]
  - LIMB DISCOMFORT [None]
  - MUSCULAR WEAKNESS [None]
  - MUSCULOSKELETAL DISCOMFORT [None]
  - MYALGIA [None]
  - NIGHT SWEATS [None]
  - OSTEOARTHRITIS [None]
  - PAIN IN EXTREMITY [None]
  - POLLAKIURIA [None]
  - ROTATOR CUFF SYNDROME [None]
  - TENDERNESS [None]
  - TENDONITIS [None]
